FAERS Safety Report 5358475-X (Version None)
Quarter: 2007Q2

REPORT INFORMATION
  Report Type: 
  Country: None (occurrence: None)
  Receive Date: 20070601
  Receipt Date: 20070226
  Transmission Date: 20071010
  Serious: No
  Sender: FDA-Public Use
  Company Number: US-1161888

PATIENT
  Sex: Female

DRUGS (2)
  1. NEVANAC [Suspect]
     Dosage: (OPHTHALMIC)
     Route: 047
  2. ECONOPRED PLUS [Suspect]
     Dosage: (OPHTHALMIC)
     Route: 047

REACTIONS (3)
  - ABNORMAL SENSATION IN EYE [None]
  - DRY EYE [None]
  - OCULAR DISCOMFORT [None]
